FAERS Safety Report 21064778 (Version 1)
Quarter: 2022Q3

REPORT INFORMATION
  Report Type: Spontaneous
  Country: US (occurrence: None)
  Receive Date: 20220710
  Receipt Date: 20220710
  Transmission Date: 20221027
  Serious: No
  Sender: FDA-Public Use
  Company Number: None

PATIENT
  Age: 72 Year
  Sex: Male
  Weight: 77.4 kg

DRUGS (17)
  1. XALATAN [Suspect]
     Active Substance: LATANOPROST
     Indication: Glaucoma
     Dosage: OTHER QUANTITY : 1 DROP(S);?FREQUENCY : AT BEDTIME;?
     Route: 047
  2. LATANOPROST [Suspect]
     Active Substance: LATANOPROST
  3. AREDS VITAMIN [Concomitant]
  4. ZINC [Concomitant]
     Active Substance: ZINC
  5. VITAMIN C [Concomitant]
     Active Substance: ASCORBIC ACID
  6. HYDROCHLOROTHIAZIDE [Concomitant]
  7. JARDIANCE [Concomitant]
     Active Substance: EMPAGLIFLOZIN
  8. ONGLYZA [Concomitant]
     Active Substance: SAXAGLIPTIN HYDROCHLORIDE
  9. DUOXELTINE [Concomitant]
  10. XANAX [Concomitant]
     Active Substance: ALPRAZOLAM
  11. DOXAZOCIN [Concomitant]
  12. MYRBETRIQUE [Concomitant]
  13. VITAMIN B12 [Concomitant]
     Active Substance: CYANOCOBALAMIN
  14. VITAMIN D3 [Concomitant]
     Active Substance: CHOLECALCIFEROL
  15. ERGOCALCIFEROL [Concomitant]
  16. FLONASE [Concomitant]
     Active Substance: FLUTICASONE PROPIONATE
  17. FLORASTOR PROBIOTIC [Concomitant]

REACTIONS (4)
  - Nightmare [None]
  - Abnormal dreams [None]
  - Insurance issue [None]
  - Aggression [None]

NARRATIVE: CASE EVENT DATE: 20151103
